FAERS Safety Report 4881707-9 (Version None)
Quarter: 2005Q4

REPORT INFORMATION
  Report Type: 
  Country: None (occurrence: None)
  Receive Date: 20051201
  Receipt Date: 20050724
  Transmission Date: 20060501
  Serious: No
  Sender: FDA-Public Use
  Company Number: 2005PV000580

PATIENT
  Age: 40 Year
  Sex: Female
  Weight: 127.0072 kg

DRUGS (11)
  1. BYETTA [Suspect]
     Indication: DIABETES MELLITUS NON-INSULIN-DEPENDENT
     Dosage: SEE IMAGE
     Route: 058
     Dates: start: 20050601, end: 20050711
  2. BYETTA [Suspect]
     Indication: DIABETES MELLITUS NON-INSULIN-DEPENDENT
     Dosage: SEE IMAGE
     Route: 058
     Dates: start: 20050712, end: 20050717
  3. BYETTA [Suspect]
     Indication: DIABETES MELLITUS NON-INSULIN-DEPENDENT
     Dosage: SEE IMAGE
     Route: 058
     Dates: start: 20050724
  4. METFORMIN HCL [Concomitant]
  5. ALTACE [Concomitant]
  6. ORAL CONTRACEPTIVES [Concomitant]
  7. AMARYL [Concomitant]
  8. FISH OIL [Concomitant]
  9. COENZYME Q10 [Concomitant]
  10. MULTIVITAMIN [Concomitant]
  11. AMARYL [Concomitant]

REACTIONS (6)
  - HYPERSENSITIVITY [None]
  - INJECTION SITE INDURATION [None]
  - INJECTION SITE PRURITUS [None]
  - INJECTION SITE URTICARIA [None]
  - NAUSEA [None]
  - PRURITUS [None]
